FAERS Safety Report 14572468 (Version 1)
Quarter: 2018Q1

REPORT INFORMATION
  Report Type: Spontaneous
  Country: FR (occurrence: FR)
  Receive Date: 20180226
  Receipt Date: 20180226
  Transmission Date: 20180509
  Serious: Yes (Other)
  Sender: FDA-Public Use
  Company Number: FR-MERCK KGAA-2042543

PATIENT
  Sex: Female

DRUGS (3)
  1. NOVOTHYROX [Suspect]
     Active Substance: LEVOTHYROXINE SODIUM
     Indication: HYPOTHYROIDISM
     Dates: start: 201406, end: 201703
  2. LEVOTHYROXINE SODIUM. [Suspect]
     Active Substance: LEVOTHYROXINE SODIUM
     Dates: start: 201801
  3. LEVOTHYROXINE SODIUM. [Suspect]
     Active Substance: LEVOTHYROXINE SODIUM
     Dates: start: 201801

REACTIONS (12)
  - Abdominal pain [None]
  - Blood thyroid stimulating hormone abnormal [None]
  - Disturbance in attention [None]
  - Muscle spasms [None]
  - Vomiting [None]
  - Nausea [None]
  - Alopecia [None]
  - Affective disorder [None]
  - Bradycardia [None]
  - Arrhythmia [None]
  - Fatigue [None]
  - Tachycardia [None]

NARRATIVE: CASE EVENT DATE: 2014
